FAERS Safety Report 14341763 (Version 1)
Quarter: 2018Q1

REPORT INFORMATION
  Report Type: Spontaneous
  Country: DE (occurrence: DE)
  Receive Date: 20180102
  Receipt Date: 20180102
  Transmission Date: 20180509
  Serious: Yes (Other)
  Sender: FDA-Public Use
  Company Number: DE-NAPPMUNDI-GBR-2017-0051827

PATIENT
  Age: 87 Year
  Sex: Female

DRUGS (2)
  1. DEKRISTOL [Suspect]
     Active Substance: CHOLECALCIFEROL
     Indication: OSTEOPOROSIS
     Dosage: 2000 IU, DAILY
     Route: 065
  2. TARGIN [Suspect]
     Active Substance: NALOXONE HYDROCHLORIDE\OXYCODONE HYDROCHLORIDE
     Indication: PAIN
     Dosage: STRENGTH 10 MG
     Route: 065

REACTIONS (6)
  - Bone pain [Recovered/Resolved]
  - Drug withdrawal syndrome [Recovered/Resolved]
  - Medication error [Unknown]
  - Product appearance confusion [Unknown]
  - Off label use [Unknown]
  - Pain in extremity [Recovered/Resolved]
